FAERS Safety Report 23333727 (Version 4)
Quarter: 2024Q1

REPORT INFORMATION
  Report Type: Report from Study
  Country: CA (occurrence: CA)
  Receive Date: 20231223
  Receipt Date: 20240326
  Transmission Date: 20240410
  Serious: Yes (Hospitalization, Other)
  Sender: FDA-Public Use
  Company Number: CA-ABBVIE-5529482

PATIENT
  Sex: Male

DRUGS (3)
  1. RINVOQ [Suspect]
     Active Substance: UPADACITINIB
     Indication: Rheumatoid arthritis
     Dosage: FORM STRENGTH: 15 MILLIGRAM
     Route: 048
     Dates: start: 20230426, end: 20231230
  2. RINVOQ [Suspect]
     Active Substance: UPADACITINIB
     Indication: Rheumatoid arthritis
     Dosage: FORM STRENGTH: 15 MILLIGRAM
     Route: 048
     Dates: start: 20240318
  3. RINVOQ [Suspect]
     Active Substance: UPADACITINIB
     Indication: Rheumatoid arthritis
     Dosage: FORM STRENGTH: 15 MILLIGRAM
     Route: 048
     Dates: start: 20240309, end: 20240311

REACTIONS (10)
  - COVID-19 [Not Recovered/Not Resolved]
  - Pneumonia [Recovered/Resolved]
  - Rib fracture [Unknown]
  - Respiratory distress [Unknown]
  - Dysphagia [Unknown]
  - Pulmonary fibrosis [Unknown]
  - Gait inability [Unknown]
  - Influenza [Unknown]
  - Pneumonia [Not Recovered/Not Resolved]
  - Oxygen saturation decreased [Unknown]

NARRATIVE: CASE EVENT DATE: 20230101
